FAERS Safety Report 8866526 (Version 1)
Quarter: 2012Q4

REPORT INFORMATION
  Report Type: 
  Country: US (occurrence: US)
  Receive Date: 20121025
  Receipt Date: 20121025
  Transmission Date: 20130627
  Serious: No
  Sender: FDA-Public Use
  Company Number: US-ABBOTT-11P-163-0871094-00

PATIENT
  Age: 31 Year
  Sex: Female
  Weight: 79 kg

DRUGS (1)
  1. LUPRON DEPOT [Suspect]
     Indication: UTERINE LEIOMYOMA
     Dates: start: 20111011

REACTIONS (5)
  - Menorrhagia [Not Recovered/Not Resolved]
  - Cough [Recovering/Resolving]
  - Upper respiratory tract congestion [Recovering/Resolving]
  - Dehydration [Recovered/Resolved]
  - Infection [Recovering/Resolving]
